FAERS Safety Report 16344047 (Version 3)
Quarter: 2019Q2

REPORT INFORMATION
  Report Type: Spontaneous
  Country: JP (occurrence: JP)
  Receive Date: 20190522
  Receipt Date: 20190625
  Transmission Date: 20190711
  Serious: Yes (Death)
  Sender: FDA-Public Use
  Company Number: JP-NAPPMUNDI-GBR-2019-0066264

PATIENT
  Age: 42 Year
  Sex: Male

DRUGS (23)
  1. OXINORM (OXYCODONE HYDROCHLORIDE) [Suspect]
     Active Substance: OXYCODONE HYDROCHLORIDE
     Dosage: 10 MG, PRN
     Route: 048
     Dates: start: 20180921
  2. MELOXICAM. [Concomitant]
     Active Substance: MELOXICAM
     Indication: CANCER PAIN
     Dosage: 10 MG, DAILY
     Route: 048
     Dates: end: 20190423
  3. CALONAL [Concomitant]
     Active Substance: ACETAMINOPHEN
     Indication: CANCER PAIN
     Dosage: 4000 MG, DAILY
     Route: 048
     Dates: end: 20181227
  4. CODEINE PHOSPHATE [Suspect]
     Active Substance: CODEINE PHOSPHATE
     Indication: LUNG NEOPLASM MALIGNANT
     Dosage: 0.5 G, DAILY
     Route: 048
     Dates: start: 20181215, end: 20190423
  5. ZYPREXA [Concomitant]
     Active Substance: OLANZAPINE
     Indication: LUNG NEOPLASM MALIGNANT
     Dosage: 2.5 MG, DAILY
     Route: 048
     Dates: end: 20190423
  6. BROTIZOLAM [Concomitant]
     Active Substance: BROTIZOLAM
     Indication: INSOMNIA
     Dosage: 0.25 MG, DAILY
     Route: 048
     Dates: start: 20190416, end: 20190423
  7. OXYCONTIN [Suspect]
     Active Substance: OXYCODONE HYDROCHLORIDE
     Dosage: 60 MG, DAILY
     Route: 048
     Dates: start: 20180921
  8. MEDICON                            /00048102/ [Suspect]
     Active Substance: DEXTROMETHORPHAN HYDROBROMIDE
     Indication: LUNG NEOPLASM MALIGNANT
     Dosage: 0.2 G, DAILY
     Route: 048
     Dates: start: 20181215, end: 20190423
  9. MAGNESIUM OXIDE. [Suspect]
     Active Substance: MAGNESIUM OXIDE
     Indication: CONSTIPATION
     Dosage: 1980 MG, DAILY (STRENGTH 330MG)
     Route: 048
     Dates: end: 20190423
  10. MAGNESIUM OXIDE. [Suspect]
     Active Substance: MAGNESIUM OXIDE
     Dosage: 660 MG, DAILY (STRENGTH 330MG)
     Route: 048
     Dates: start: 20181219, end: 20190423
  11. PREDONINE [Concomitant]
     Active Substance: PREDNISOLONE
     Indication: METASTASES TO BONE
     Dosage: 25 MG, DAILY
     Route: 048
     Dates: start: 20190201, end: 20190423
  12. SOLANAX [Concomitant]
     Active Substance: ALPRAZOLAM
     Indication: ANXIETY
     Dosage: 0.8 MG, DAILY
     Dates: start: 20190131, end: 20190423
  13. RABEPRAZOLE SODIUM. [Concomitant]
     Active Substance: RABEPRAZOLE SODIUM
     Dosage: UNK
     Route: 048
     Dates: end: 20181211
  14. NIFLAN [Concomitant]
     Active Substance: PRANOPROFEN
     Indication: CANCER PAIN
     Dosage: 600 MG, DAILY
     Route: 048
     Dates: start: 20181227, end: 20190423
  15. HUSTAZOL                           /00398402/ [Concomitant]
     Indication: LUNG NEOPLASM MALIGNANT
     Dosage: 30 MG, DAILY
     Route: 048
     Dates: end: 20190321
  16. FENTOS [Suspect]
     Active Substance: FENTANYL
     Indication: CANCER PAIN
     Dosage: 8 MG, DAILY
     Route: 062
     Dates: start: 20181217, end: 20190425
  17. FENTOS [Suspect]
     Active Substance: FENTANYL
     Dosage: 12 MG, DAILY
     Route: 062
     Dates: start: 20181030
  18. RABEPRAZOLE SODIUM. [Concomitant]
     Active Substance: RABEPRAZOLE SODIUM
     Indication: CANCER PAIN
     Dosage: 10 MG, DAILY
     Route: 048
     Dates: start: 20181212, end: 20190415
  19. OXYCONTIN [Suspect]
     Active Substance: OXYCODONE HYDROCHLORIDE
     Indication: CANCER PAIN
     Dosage: 320 MG, DAILY
     Route: 048
     Dates: start: 20181126, end: 20190416
  20. OXINORM (OXYCODONE HYDROCHLORIDE) [Suspect]
     Active Substance: OXYCODONE HYDROCHLORIDE
     Indication: CANCER PAIN
     Dosage: 40 MG, PRN
     Route: 048
     Dates: start: 20181126, end: 20190423
  21. NAIXAN                             /00256201/ [Concomitant]
     Active Substance: NAPROXEN
     Indication: CANCER PAIN
     Dosage: 600 MG, DAILY
     Route: 048
     Dates: end: 20190423
  22. ARGAMATE [Concomitant]
     Active Substance: CALCIUM POLYSTYRENE SULFONATE
     Indication: HYPERKALAEMIA
     Dosage: 150 G, DAILY
     Route: 048
     Dates: start: 20181212, end: 20190422
  23. METHYLEPHEDRINE HYDROCHLORIDE-DL [Concomitant]
     Active Substance: METHYLEPHEDRINE HYDROCHLORIDE, (+/-)-
     Indication: LUNG NEOPLASM MALIGNANT
     Dosage: 0.4 G, DAILY
     Route: 048
     Dates: start: 20181215, end: 20190423

REACTIONS (3)
  - Squamous cell carcinoma of lung [Fatal]
  - Diarrhoea [Not Recovered/Not Resolved]
  - Constipation [Recovered/Resolved]

NARRATIVE: CASE EVENT DATE: 20190416
